FAERS Safety Report 21874915 (Version 1)
Quarter: 2023Q1

REPORT INFORMATION
  Report Type: Spontaneous
  Country: US (occurrence: US)
  Receive Date: 20230117
  Receipt Date: 20230117
  Transmission Date: 20230418
  Serious: No
  Sender: FDA-Public Use
  Company Number: US-EVOKE PHARMA, INC.-2022EVO000184

PATIENT

DRUGS (1)
  1. GIMOTI [Suspect]
     Active Substance: METOCLOPRAMIDE HYDROCHLORIDE
     Indication: Impaired gastric emptying
     Dosage: 15 MILLIGRAM, QID
     Route: 045
     Dates: start: 20221028, end: 20221106

REACTIONS (4)
  - Vision blurred [Recovered/Resolved]
  - Breast pain [Unknown]
  - Visual impairment [Recovered/Resolved]
  - Lactation puerperal increased [Recovering/Resolving]

NARRATIVE: CASE EVENT DATE: 20220101
